FAERS Safety Report 18331605 (Version 2)
Quarter: 2020Q4

REPORT INFORMATION
  Report Type: Spontaneous
  Country: CN (occurrence: CN)
  Receive Date: 20200930
  Receipt Date: 20201016
  Transmission Date: 20210113
  Serious: Yes (Death, Life-Threatening, Other)
  Sender: FDA-Public Use
  Company Number: CN-BRACCO-2020CN03943

PATIENT
  Age: 70 Year
  Sex: Male

DRUGS (3)
  1. IOPAMIRO [Suspect]
     Active Substance: IOPAMIDOL
     Indication: ANGIOGRAM
     Dosage: 75 ML, SINGLE, 4.5 ML/SEC
     Route: 042
     Dates: start: 20200922, end: 20200922
  2. SODIUM CHLORIDE. [Concomitant]
     Active Substance: SODIUM CHLORIDE
     Dosage: 20 ML, 4.5 ML
     Route: 042
     Dates: start: 20200922, end: 20200922
  3. SODIUM CHLORIDE. [Concomitant]
     Active Substance: SODIUM CHLORIDE
     Dosage: 0.9%, 5.0ML/SEC
     Route: 042
     Dates: start: 20200922, end: 20200922

REACTIONS (1)
  - Cardio-respiratory arrest [Fatal]

NARRATIVE: CASE EVENT DATE: 20200922
